FAERS Safety Report 8432594-3 (Version None)
Quarter: 2012Q2

REPORT INFORMATION
  Report Type: 
  Country: None (occurrence: None)
  Receive Date: 20120613
  Receipt Date: 20120531
  Transmission Date: 20120825
  Serious: Yes (Other)
  Sender: FDA-Public Use
  Company Number: NL-AMGEN-NLDSP2012020068

PATIENT
  Age: 45 Year
  Sex: Female
  Weight: 90 kg

DRUGS (6)
  1. PANTOPRAZOLE [Concomitant]
     Indication: PROPHYLAXIS
     Dosage: 20 MG, 1X/DAY
  2. PARACETAMOL WITH CODEINE PHOSPHATE [Concomitant]
     Indication: RHEUMATOID ARTHRITIS
     Dosage: 500 MG, 2X/DAY
  3. ENBREL [Suspect]
     Indication: RHEUMATOID ARTHRITIS
     Dosage: 50 MG, WEEKLY
     Dates: start: 20080601
  4. IBUPROFEN [Concomitant]
     Indication: RHEUMATOID ARTHRITIS
     Dosage: 800 MG, BID
  5. IBUPROFEN [Concomitant]
     Dosage: 800 MG, 2X/DAY
  6. DAPSONE [Concomitant]
     Dosage: 50 MG, 1X/DAY

REACTIONS (2)
  - STRESS [None]
  - RHEUMATOID ARTHRITIS [None]
